FAERS Safety Report 5403258-5 (Version None)
Quarter: 2007Q3

REPORT INFORMATION
  Report Type: 
  Country: None (occurrence: None)
  Receive Date: 20070727
  Receipt Date: 20070712
  Transmission Date: 20080115
  Serious: Yes (Death)
  Sender: FDA-Public Use
  Company Number: 2007001286

PATIENT
  Age: 56 Year
  Sex: Female

DRUGS (1)
  1. TARCEVA [Suspect]
     Indication: BREAST CANCER
     Dosage: 100 MG (QD), ORAL
     Route: 048

REACTIONS (2)
  - ASTHENIA [None]
  - WEIGHT DECREASED [None]
